FAERS Safety Report 25070416 (Version 4)
Quarter: 2025Q4

REPORT INFORMATION
  Report Type: Report from Study
  Country: None (occurrence: EU)
  Receive Date: 20250312
  Receipt Date: 20251230
  Transmission Date: 20260117
  Serious: Yes (Other)
  Sender: ALNYLAM PHARMACEUTICALS
  Company Number: EU-ALNYLAM PHARMACEUTICALS, INC.-ALN-2025-001682

PATIENT
  Age: 47 Year

DRUGS (2)
  1. OXLUMO [Suspect]
     Active Substance: LUMASIRAN
     Indication: Product used for unknown indication
     Dosage: 159 MILLIGRAM, Q3M (94.5 MG/0.5 ML)
     Route: 065
  2. VITAMIN B6 [Suspect]
     Active Substance: PYRIDOXINE HYDROCHLORIDE
     Indication: Product used for unknown indication
     Dosage: UNK
     Route: 065

REACTIONS (18)
  - Renal impairment [Unknown]
  - Hepatic fibrosis [Unknown]
  - Infected fistula [Unknown]
  - Staphylococcal infection [Unknown]
  - General physical health deterioration [Unknown]
  - Malaise [Unknown]
  - Decreased appetite [Unknown]
  - Bone pain [Unknown]
  - Fatigue [Not Recovered/Not Resolved]
  - Gait disturbance [Unknown]
  - Taste disorder [Unknown]
  - Vomiting [Unknown]
  - Pollakiuria [Unknown]
  - Vitamin supplementation [Unknown]
  - Mobility decreased [Unknown]
  - Parathyroid disorder [Unknown]
  - Fluid intake reduced [Unknown]
  - Liver disorder [Unknown]
